FAERS Safety Report 8622718-7 (Version None)
Quarter: 2012Q3

REPORT INFORMATION
  Report Type: 
  Country: None (occurrence: None)
  Receive Date: 20120827
  Receipt Date: 20120817
  Transmission Date: 20120928
  Serious: Yes (Other)
  Sender: FDA-Public Use
  Company Number: US-JNJFOC-20120810150

PATIENT
  Sex: Female
  Weight: 106.6 kg

DRUGS (8)
  1. REMICADE [Suspect]
     Indication: RHEUMATOID ARTHRITIS
     Route: 042
     Dates: start: 20120701
  2. CORTISONE ACETATE [Suspect]
     Indication: RHEUMATOID ARTHRITIS
     Route: 065
  3. ENBREL [Suspect]
     Indication: RHEUMATOID ARTHRITIS
     Route: 065
  4. PREDNISONE TAB [Suspect]
     Indication: RHEUMATOID ARTHRITIS
     Route: 065
  5. REMICADE [Suspect]
     Dosage: EVERY 6 TO 8 WEEKS
     Route: 042
     Dates: start: 20030101, end: 20060101
  6. METHOTREXATE [Concomitant]
     Indication: RHEUMATOID ARTHRITIS
     Route: 048
     Dates: end: 20030101
  7. PREDNISONE TAB [Concomitant]
     Route: 048
     Dates: start: 20120501
  8. NORCO [Concomitant]
     Indication: PAIN
     Dosage: 10-35 TABLETS ONE TO TWO TABLETS DAILY
     Route: 048
     Dates: start: 20070101

REACTIONS (14)
  - ALOPECIA [None]
  - VITAMIN D DECREASED [None]
  - CHILLS [None]
  - SKIN ATROPHY [None]
  - URTICARIA [None]
  - HYPERSENSITIVITY [None]
  - DIABETES MELLITUS [None]
  - DRUG INEFFECTIVE [None]
  - OSTEOARTHRITIS [None]
  - CHEST DISCOMFORT [None]
  - INSOMNIA [None]
  - PRURITUS [None]
  - ANIMAL SCRATCH [None]
  - HEADACHE [None]
